FAERS Safety Report 19846591 (Version 1)
Quarter: 2021Q3

REPORT INFORMATION
  Report Type: Spontaneous
  Country: US (occurrence: US)
  Receive Date: 20210917
  Receipt Date: 20210917
  Transmission Date: 20211014
  Serious: Yes (Other)
  Sender: FDA-Public Use
  Company Number: US-SHILPA MEDICARE LIMITED-SML-US-2021-01093

PATIENT
  Age: 7 Year
  Sex: Male
  Weight: 19 kg

DRUGS (6)
  1. ZOLEDRONIC ACID, UNKNOWN [Suspect]
     Active Substance: ZOLEDRONIC ACID
     Indication: FIBROUS DYSPLASIA OF BONE
     Route: 065
  2. PHOSPHORUS [Suspect]
     Active Substance: PHOSPHORUS
     Indication: ALBRIGHT^S DISEASE
  3. ZOLEDRONIC ACID, UNKNOWN [Suspect]
     Active Substance: ZOLEDRONIC ACID
     Indication: ALBRIGHT^S DISEASE
  4. CALCITRIOL. [Suspect]
     Active Substance: CALCITRIOL
     Indication: ALBRIGHT^S DISEASE
     Route: 065
  5. PHOSPHORUS [Suspect]
     Active Substance: PHOSPHORUS
     Indication: FIBROUS DYSPLASIA OF BONE
     Route: 065
  6. CALCITRIOL. [Suspect]
     Active Substance: CALCITRIOL
     Indication: FIBROUS DYSPLASIA OF BONE
     Route: 065

REACTIONS (12)
  - Bone pain [Recovered/Resolved]
  - Proteinuria [Recovered/Resolved]
  - Limb deformity [Unknown]
  - Precocious puberty [Unknown]
  - Renal tubular disorder [Recovered/Resolved]
  - Electrolyte imbalance [Recovered/Resolved]
  - Acidosis hyperchloraemic [Recovered/Resolved]
  - Fracture [Recovered/Resolved]
  - Loss of personal independence in daily activities [Unknown]
  - Fanconi syndrome [Recovered/Resolved]
  - Hypokalaemia [Recovered/Resolved]
  - Scoliosis [Unknown]
